FAERS Safety Report 12272420 (Version 1)
Quarter: 2016Q2

REPORT INFORMATION
  Report Type: Spontaneous
  Country: GB (occurrence: GB)
  Receive Date: 20160415
  Receipt Date: 20160415
  Transmission Date: 20160815
  Serious: Yes (Other)
  Sender: FDA-Public Use
  Company Number: GB-ASTRAZENECA-2016SE38879

PATIENT
  Sex: Female

DRUGS (1)
  1. ZOLADEX [Suspect]
     Active Substance: GOSERELIN ACETATE
     Indication: ENDOMETRIOSIS
     Route: 058
     Dates: start: 20160225

REACTIONS (7)
  - Visual impairment [Not Recovered/Not Resolved]
  - Ephelides [Not Recovered/Not Resolved]
  - Thirst [Not Recovered/Not Resolved]
  - Macular degeneration [Not Recovered/Not Resolved]
  - Facial pain [Not Recovered/Not Resolved]
  - Eye colour change [Not Recovered/Not Resolved]
  - Aptyalism [Not Recovered/Not Resolved]
